FAERS Safety Report 7667534-8 (Version None)
Quarter: 2011Q3

REPORT INFORMATION
  Report Type: 
  Country: None (occurrence: None)
  Receive Date: 20110806
  Receipt Date: 20110428
  Transmission Date: 20111222
  Serious: No
  Sender: FDA-Public Use
  Company Number: US-ABBOTT-11P-163-0722609-00

PATIENT
  Sex: Female
  Weight: 56.75 kg

DRUGS (2)
  1. NIASPAN [Suspect]
     Indication: BLOOD CHOLESTEROL
     Dates: start: 20101025, end: 20101028
  2. UNKNOWN MEDICATION [Suspect]
     Indication: BLOOD CHOLESTEROL
     Dates: start: 20100101, end: 20100101

REACTIONS (2)
  - RASH [None]
  - ERYTHEMA [None]
